FAERS Safety Report 16915274 (Version 1)
Quarter: 2019Q4

REPORT INFORMATION
  Report Type: Spontaneous
  Country: US (occurrence: US)
  Receive Date: 20191012
  Receipt Date: 20191012
  Transmission Date: 20200122
  Serious: Yes (Disabling, Other)
  Sender: FDA-Public Use
  Company Number: None

PATIENT
  Age: 46 Year
  Sex: Female
  Weight: 75.6 kg

DRUGS (7)
  1. BARIATRIC PAL [Concomitant]
  2. NP THYROID [Suspect]
     Active Substance: LEVOTHYROXINE\LIOTHYRONINE
     Indication: HYPOTHYROIDISM
     Dosage: ?          QUANTITY:1 TABLET(S);?
     Route: 048
     Dates: start: 20190731
  3. PROGESTERONE. [Concomitant]
     Active Substance: PROGESTERONE
  4. MULTIVITAMIN [Concomitant]
     Active Substance: VITAMINS
  5. VITAMIN D [Concomitant]
     Active Substance: VITAMIN D NOS
  6. TESTOSTERON [Concomitant]
     Active Substance: TESTOSTERONE
  7. IRON [Concomitant]
     Active Substance: IRON

REACTIONS (7)
  - Rash [None]
  - Furuncle [None]
  - Vulval abscess [None]
  - Constipation [None]
  - Asthenia [None]
  - Product odour abnormal [None]
  - Depression [None]

NARRATIVE: CASE EVENT DATE: 20190731
